FAERS Safety Report 9798868 (Version 2)
Quarter: 2014Q1

REPORT INFORMATION
  Report Type: Spontaneous
  Country: US (occurrence: US)
  Receive Date: 20140106
  Receipt Date: 20140106
  Transmission Date: 20141002
  Serious: No
  Sender: FDA-Public Use
  Company Number: US-GILEAD-2010-0032252

PATIENT
  Sex: Female

DRUGS (8)
  1. LETAIRIS [Suspect]
     Indication: PULMONARY ARTERIAL HYPERTENSION
     Route: 048
     Dates: start: 20100719, end: 20100823
  2. REVATIO [Concomitant]
     Indication: PULMONARY ARTERIAL HYPERTENSION
  3. GLIPIZIDE [Concomitant]
  4. ZANTAC [Concomitant]
  5. NEXIUM [Concomitant]
  6. DIPHENOXYLATE/ATROPINE [Concomitant]
  7. AMBIEN [Concomitant]
  8. ZOLOFT [Concomitant]

REACTIONS (2)
  - Oedema peripheral [Unknown]
  - Weight increased [Unknown]
